FAERS Safety Report 8845964 (Version 5)
Quarter: 2014Q3

REPORT INFORMATION
  Report Type: Spontaneous
  Country: JP (occurrence: JP)
  Receive Date: 20121017
  Receipt Date: 20140814
  Transmission Date: 20150326
  Serious: Yes (Death, Hospitalization, Other)
  Sender: FDA-Public Use
  Company Number: JP-ROCHE-1146071

PATIENT
  Age: 74 Year
  Sex: Male
  Weight: 66 kg

DRUGS (5)
  1. AVASTIN [Suspect]
     Active Substance: BEVACIZUMAB
     Indication: COLON CANCER METASTATIC
     Dosage: TREATMENT LINE: 1 PRIMARY ?COMPLETED TREATMENT CYCLE NUMBER: 16
     Route: 041
     Dates: start: 20100521, end: 20110606
  2. ELPLAT [Suspect]
     Active Substance: OXALIPLATIN
     Indication: COLON CANCER METASTATIC
     Route: 041
     Dates: start: 20100427, end: 20101222
  3. XELODA [Suspect]
     Active Substance: CAPECITABINE
     Indication: COLON CANCER METASTATIC
     Route: 048
     Dates: start: 20100427, end: 20100624
  4. XELODA [Suspect]
     Active Substance: CAPECITABINE
     Route: 048
     Dates: start: 20100712, end: 20110619
  5. ELPLAT [Suspect]
     Active Substance: OXALIPLATIN
     Indication: COLON CANCER METASTATIC
     Dosage: COMPLETED TREATMENT CYCLE NUMBER: 11
     Route: 041
     Dates: start: 20110516, end: 20110606

REACTIONS (21)
  - Diarrhoea [Recovered/Resolved]
  - Fibrin degradation products increased [Unknown]
  - Anterior spinal artery syndrome [Unknown]
  - Platelet count decreased [Unknown]
  - Respiratory failure [Fatal]
  - Neurogenic shock [Fatal]
  - Bone marrow failure [Unknown]
  - Neuropathy peripheral [Unknown]
  - Cystitis haemorrhagic [Unknown]
  - Haemorrhage [Unknown]
  - Dysuria [Unknown]
  - Lacunar infarction [Unknown]
  - Pneumonia aspiration [Unknown]
  - Aortic arteriosclerosis [Unknown]
  - Spinal cord haemorrhage [Fatal]
  - Colon cancer [Fatal]
  - Embolism [Unknown]
  - Spinal cord infarction [Fatal]
  - Diplegia [Unknown]
  - Cytomegalovirus infection [Unknown]
  - Metastases to spine [Unknown]

NARRATIVE: CASE EVENT DATE: 20100611
